FAERS Safety Report 10342678 (Version 2)
Quarter: 2014Q3

REPORT INFORMATION
  Report Type: Spontaneous
  Country: PL (occurrence: PL)
  Receive Date: 20140725
  Receipt Date: 20140725
  Transmission Date: 20150326
  Serious: Yes (Hospitalization, Other)
  Sender: FDA-Public Use
  Company Number: PL-ACTAVIS-2014-15115

PATIENT
  Age: 46 Year
  Sex: Female

DRUGS (6)
  1. CAPECITABINE (UNKNOWN) [Suspect]
     Active Substance: CAPECITABINE
     Indication: INVASIVE DUCTAL BREAST CARCINOMA
     Dosage: UNK
     Route: 065
  2. FERVEX /00959901/ [Suspect]
     Active Substance: ACETAMINOPHEN\ASCORBIC ACID\PHENIRAMINE MALEATE
     Indication: NASOPHARYNGITIS
     Dosage: APPROXIMATELY 5.5 G PARACETAMOL DAILY
     Route: 048
  3. GOSERELIN [Concomitant]
     Active Substance: GOSERELIN
     Indication: INVASIVE DUCTAL BREAST CARCINOMA
     Dosage: UNK
     Route: 065
  4. VINORELBINE [Suspect]
     Active Substance: VINORELBINE\VINORELBINE TARTRATE
     Indication: INVASIVE DUCTAL BREAST CARCINOMA
     Dosage: UNK
     Route: 065
  5. TAMOXIFEN [Concomitant]
     Active Substance: TAMOXIFEN
     Indication: INVASIVE DUCTAL BREAST CARCINOMA
     Dosage: UNK
     Route: 065
  6. PARACETAMOL  (UNKNOWN) [Suspect]
     Active Substance: ACETAMINOPHEN
     Indication: NASOPHARYNGITIS
     Dosage: APPROXIMATELY 5.5 G PARACETAMOL DAILY
     Route: 048

REACTIONS (16)
  - International normalised ratio increased [None]
  - Thrombocytopenia [None]
  - Accidental overdose [None]
  - Blood fibrinogen decreased [None]
  - Hepatic steatosis [None]
  - Abdominal pain upper [None]
  - Cytomegalovirus test positive [None]
  - Dyspepsia [None]
  - Influenza like illness [None]
  - Prothrombin time prolonged [None]
  - Drug-induced liver injury [Recovered/Resolved]
  - Self-medication [Recovered/Resolved]
  - Overdose [Recovered/Resolved]
  - Coagulopathy [None]
  - Fibrin D dimer increased [None]
  - Epstein-Barr virus antibody positive [None]

NARRATIVE: CASE EVENT DATE: 2011
